FAERS Safety Report 12746395 (Version 9)
Quarter: 2019Q4

REPORT INFORMATION
  Report Type: Report from Study
  Country: US (occurrence: US)
  Receive Date: 20160915
  Receipt Date: 20191010
  Transmission Date: 20200122
  Serious: Yes (Other)
  Sender: FDA-Public Use
  Company Number: US-SA-2016SA166773

PATIENT
  Age: 36 Year
  Sex: Female

DRUGS (1)
  1. ALEMTUZUMAB [Suspect]
     Active Substance: ALEMTUZUMAB
     Indication: MULTIPLE SCLEROSIS
     Dosage: 12 MG,QD
     Route: 041
     Dates: start: 20160822, end: 20160826

REACTIONS (39)
  - Gastrointestinal inflammation [Unknown]
  - Mobility decreased [Unknown]
  - Feeling cold [Recovered/Resolved]
  - Diarrhoea [Unknown]
  - Nausea [Unknown]
  - Rash erythematous [Not Recovered/Not Resolved]
  - Viral infection [Unknown]
  - Malaise [Recovered/Resolved]
  - Anxiety [Unknown]
  - Neck pain [Recovered/Resolved]
  - Emotional disorder [Unknown]
  - Loss of consciousness [Recovered/Resolved]
  - Loss of consciousness [Recovered/Resolved]
  - Visual impairment [Recovered/Resolved]
  - Decreased immune responsiveness [Unknown]
  - Chest pain [Unknown]
  - Dyspnoea [Not Recovered/Not Resolved]
  - Vomiting [Recovered/Resolved]
  - Fatigue [Recovered/Resolved]
  - Food allergy [Not Recovered/Not Resolved]
  - Biliary colic [Unknown]
  - Tremor [Recovered/Resolved]
  - Blood pressure diastolic increased [Unknown]
  - Headache [Not Recovered/Not Resolved]
  - Dizziness [Recovered/Resolved]
  - Urinary tract infection [Unknown]
  - Depression [Unknown]
  - Syncope [Unknown]
  - Asthenia [Recovered/Resolved]
  - Renal disorder [Unknown]
  - Product use issue [Unknown]
  - Hemiparesis [Recovered/Resolved]
  - Multiple sclerosis [Unknown]
  - Skin exfoliation [Not Recovered/Not Resolved]
  - Fear [Recovered/Resolved]
  - Blood pressure increased [Unknown]
  - Limb discomfort [Recovered/Resolved]
  - Dehydration [Recovered/Resolved]
  - Gastroenteritis viral [Unknown]

NARRATIVE: CASE EVENT DATE: 2016
